FAERS Safety Report 4391019-8 (Version None)
Quarter: 2004Q3

REPORT INFORMATION
  Report Type: 
  Country: None (occurrence: None)
  Receive Date: 20040702
  Receipt Date: 20040630
  Transmission Date: 20050211
  Serious: Yes (Other)
  Sender: FDA-Public Use
  Company Number: C04-T-094

PATIENT
  Age: 58 Year
  Sex: Female

DRUGS (1)
  1. CARISOPRODOL [Suspect]
     Indication: MUSCLE SPASMS
     Dosage: ORAL
     Route: 048
     Dates: start: 20040407, end: 20040518

REACTIONS (4)
  - ABDOMINAL PAIN UPPER [None]
  - COUGH [None]
  - DRUG INEFFECTIVE [None]
  - HEADACHE [None]
